FAERS Safety Report 4681866-7 (Version None)
Quarter: 2005Q2

REPORT INFORMATION
  Report Type: 
  Country: None (occurrence: None)
  Receive Date: 20050602
  Receipt Date: 20050520
  Transmission Date: 20051028
  Serious: Yes (Death)
  Sender: FDA-Public Use
  Company Number: 2005JP001019

PATIENT
  Age: 61 Year
  Sex: Male

DRUGS (7)
  1. FUNGARD(MICAFUNGIN) INJECTION [Suspect]
     Indication: BRONCHOPULMONARY ASPERGILLOSIS
     Dosage: 150.00 MG, UID/QD, IV DRIP
     Route: 041
     Dates: start: 20050425, end: 20050428
  2. ITRIZOLE (TRACONAZOLE) PER ORAL NOS [Suspect]
     Dosage: SEE IMAGE
     Route: 048
     Dates: start: 20050315, end: 20050424
  3. ITRIZOLE (TRACONAZOLE) PER ORAL NOS [Suspect]
     Dosage: SEE IMAGE
     Route: 048
     Dates: start: 20050425, end: 20050428
  4. DIAMOX (ACETAZOLEAMIDE) [Concomitant]
  5. THEO-DUR [Concomitant]
  6. ASTOMIN (DIMEMORFAN PHOSPHATE) [Concomitant]
  7. HOKUNALIN (TULOBUTEROL) TAPE [Concomitant]

REACTIONS (4)
  - INJURY ASPHYXIATION [None]
  - NAUSEA [None]
  - SPUTUM RETENTION [None]
  - VOMITING [None]
